FAERS Safety Report 26094447 (Version 1)
Quarter: 2025Q4

REPORT INFORMATION
  Report Type: Spontaneous
  Country: US (occurrence: US)
  Receive Date: 20251126
  Receipt Date: 20251126
  Transmission Date: 20260118
  Serious: Yes (Other)
  Sender: JAZZ
  Company Number: US-JAZZ PHARMACEUTICALS-2025-US-025273

PATIENT
  Age: 7 Decade
  Sex: Female

DRUGS (1)
  1. ZIIHERA [Suspect]
     Active Substance: ZANIDATAMAB-HRII
     Indication: Product used for unknown indication

REACTIONS (1)
  - Infusion related reaction [Recovered/Resolved]
